FAERS Safety Report 8005922-0 (Version None)
Quarter: 2011Q4

REPORT INFORMATION
  Report Type: 
  Country: None (occurrence: None)
  Receive Date: 20111223
  Receipt Date: 20111219
  Transmission Date: 20120403
  Serious: Yes (Life-Threatening, Hospitalization, Other)
  Sender: FDA-Public Use
  Company Number: US-ASTRAZENECA-2011SE11192

PATIENT
  Age: 50 Year
  Sex: Female
  Weight: 76.7 kg

DRUGS (28)
  1. SEROQUEL [Suspect]
     Indication: MANIA
     Route: 048
     Dates: start: 20060101
  2. REMERON [Concomitant]
  3. VIT B2 [Concomitant]
  4. SEROQUEL [Suspect]
     Route: 048
  5. SEROQUEL [Suspect]
     Indication: SLEEP DISORDER
     Route: 048
     Dates: start: 20060101
  6. SEROQUEL [Suspect]
     Route: 048
  7. SEROQUEL [Suspect]
     Route: 048
  8. LITHIUM [Suspect]
     Dosage: TID
  9. SEROQUEL [Suspect]
     Indication: DEPRESSION
     Route: 048
     Dates: start: 20060101
  10. PRAVASTATIN [Concomitant]
  11. ASPIRIN [Concomitant]
  12. SEROQUEL [Suspect]
     Indication: BIPOLAR DISORDER
     Route: 048
     Dates: start: 20060101
  13. SEROQUEL [Suspect]
     Route: 048
  14. VITAMIN D [Concomitant]
     Dosage: WEEK
  15. SEROQUEL [Suspect]
     Route: 048
  16. LISINOPRIL [Concomitant]
  17. CITRILOPRAM [Concomitant]
  18. EPITOL [Concomitant]
  19. KLONOPIN [Concomitant]
     Dosage: 1/2 2 MG TABLET IN AM AND ONE 2 MG TABLET AT HS
  20. SEROQUEL [Suspect]
     Route: 048
  21. SEROQUEL [Suspect]
     Route: 048
  22. SEROQUEL [Suspect]
     Route: 048
  23. SEROQUEL [Suspect]
     Route: 048
  24. SEROQUEL [Suspect]
     Route: 048
  25. SEROQUEL [Suspect]
     Route: 048
  26. SEROQUEL [Suspect]
     Route: 048
  27. ASPIRIN [Concomitant]
  28. LEXAPRIL [Concomitant]

REACTIONS (12)
  - COMA [None]
  - GAIT DISTURBANCE [None]
  - ABDOMINAL PAIN UPPER [None]
  - INSOMNIA [None]
  - HYPERSENSITIVITY [None]
  - KIDNEY INFECTION [None]
  - OVERDOSE [None]
  - DYSGRAPHIA [None]
  - WALKING AID USER [None]
  - CARDIAC ARREST [None]
  - APHAGIA [None]
  - HYPOKINESIA [None]
